FAERS Safety Report 4926407-1 (Version None)
Quarter: 2006Q1

REPORT INFORMATION
  Report Type: 
  Country: None (occurrence: None)
  Receive Date: 20060228
  Receipt Date: 20051116
  Transmission Date: 20060701
  Serious: Yes (Other)
  Sender: FDA-Public Use
  Company Number: US-GLAXOSMITHKLINE-A0582540A

PATIENT
  Age: 7 Year
  Sex: Male

DRUGS (3)
  1. LAMICTAL [Suspect]
     Indication: EPILEPSY
     Route: 048
     Dates: start: 20050913
  2. ROBITUSSIN COUGH + CONGESTION [Suspect]
  3. TRIAMINIC SRT [Concomitant]
     Route: 048

REACTIONS (2)
  - AMNESIA [None]
  - CONVULSION [None]
